FAERS Safety Report 6398412-2 (Version None)
Quarter: 2009Q4

REPORT INFORMATION
  Report Type: 
  Country: None (occurrence: None)
  Receive Date: 20091013
  Receipt Date: 20091002
  Transmission Date: 20100525
  Serious: Yes (Hospitalization)
  Sender: FDA-Public Use
  Company Number: US-BAXTER-2009BH014857

PATIENT
  Age: 77 Year
  Sex: Female

DRUGS (2)
  1. DIANEAL [Suspect]
     Indication: PERITONEAL DIALYSIS
     Route: 033
     Dates: start: 20090730
  2. KEFLEX [Suspect]
     Indication: CELLULITIS
     Route: 065
     Dates: start: 20090901

REACTIONS (3)
  - ASTHENIA [None]
  - CELLULITIS [None]
  - DIARRHOEA [None]
